FAERS Safety Report 13508488 (Version 1)
Quarter: 2017Q2

REPORT INFORMATION
  Report Type: Spontaneous
  Country: US (occurrence: US)
  Receive Date: 20170503
  Receipt Date: 20170503
  Transmission Date: 20170830
  Serious: No
  Sender: FDA-Public Use
  Company Number: US-BRAINTREE LABORATORIES-160800

PATIENT
  Age: 60 Year
  Sex: Female

DRUGS (1)
  1. PEG-3350, SODIUM CHLORIDE, SODIUM BICARBONATE AND POTASSIUM CHLORIDE F [Suspect]
     Active Substance: POLYETHYLENE GLYCOL 3350\POTASSIUM CHLORIDE\SODIUM BICARBONATE\SODIUM CHLORIDE
     Indication: COLONOSCOPY
     Dosage: ~1.4L
     Route: 048
     Dates: start: 20161107, end: 20161107

REACTIONS (3)
  - Dizziness [None]
  - Vomiting [None]
  - Wrong technique in product usage process [None]

NARRATIVE: CASE EVENT DATE: 20161107
